FAERS Safety Report 6057102-6 (Version None)
Quarter: 2009Q1

REPORT INFORMATION
  Report Type: 
  Country: None (occurrence: None)
  Receive Date: 20090126
  Receipt Date: 20090126
  Transmission Date: 20090719
  Serious: Yes (Disabling)
  Sender: FDA-Public Use
  Company Number: None

PATIENT
  Age: 51 Year
  Sex: Female
  Weight: 69.8539 kg

DRUGS (2)
  1. ACIPHEX [Suspect]
     Indication: GASTROOESOPHAGEAL REFLUX DISEASE
     Dosage: 20 MG BID PO
     Route: 048
     Dates: start: 20090107, end: 20090121
  2. ACIPHEX [Suspect]
     Indication: VOCAL CORD INFLAMMATION
     Dosage: 20 MG BID PO
     Route: 048
     Dates: start: 20090107, end: 20090121

REACTIONS (11)
  - AGEUSIA [None]
  - CONDITION AGGRAVATED [None]
  - GASTROOESOPHAGEAL REFLUX DISEASE [None]
  - GLOSSODYNIA [None]
  - OEDEMA MOUTH [None]
  - ORAL PAIN [None]
  - OROPHARYNGEAL PAIN [None]
  - PHARYNGEAL OEDEMA [None]
  - STOMATITIS [None]
  - SWOLLEN TONGUE [None]
  - TONGUE BLISTERING [None]
